FAERS Safety Report 23028973 (Version 1)
Quarter: 2023Q4

REPORT INFORMATION
  Report Type: Spontaneous
  Country: US (occurrence: None)
  Receive Date: 20231004
  Receipt Date: 20231004
  Transmission Date: 20240110
  Serious: No
  Sender: FDA-Public Use
  Company Number: 2023A219186

PATIENT
  Sex: Female

DRUGS (4)
  1. FASLODEX [Suspect]
     Active Substance: FULVESTRANT
     Route: 030
     Dates: start: 202112
  2. IBRANCE [Suspect]
     Active Substance: PALBOCICLIB
     Dosage: 125.0MG UNKNOWN
     Route: 048
  3. IBRANCE [Suspect]
     Active Substance: PALBOCICLIB
     Dosage: 100.0MG UNKNOWN
     Route: 048
  4. LETROZOLE [Suspect]
     Active Substance: LETROZOLE
     Dates: start: 202203

REACTIONS (7)
  - Alopecia [Not Recovered/Not Resolved]
  - Spinal disorder [Unknown]
  - Spinal stenosis [Unknown]
  - Gait disturbance [Unknown]
  - Pain [Unknown]
  - Movement disorder [Unknown]
  - Drug intolerance [Unknown]
